FAERS Safety Report 9909762 (Version 1)
Quarter: 2014Q1

REPORT INFORMATION
  Report Type: Spontaneous
  Country: FI (occurrence: FI)
  Receive Date: 20140219
  Receipt Date: 20140219
  Transmission Date: 20141002
  Serious: Yes (Hospitalization)
  Sender: FDA-Public Use
  Company Number: FI-ELI_LILLY_AND_COMPANY-FI201402003964

PATIENT
  Age: 71 Year
  Sex: Female

DRUGS (2)
  1. ZYPADHERA [Suspect]
     Indication: PRODUCT USED FOR UNKNOWN INDICATION
     Dosage: 405 MG, UNKNOWN
     Route: 030
  2. ZYPADHERA [Suspect]
     Dosage: 405 MG, UNKNOWN
     Route: 030

REACTIONS (2)
  - Injection site infection [Recovered/Resolved]
  - Injection site induration [Unknown]
